FAERS Safety Report 7639415-7 (Version None)
Quarter: 2011Q3

REPORT INFORMATION
  Report Type: 
  Country: None (occurrence: None)
  Receive Date: 20110727
  Receipt Date: 20110708
  Transmission Date: 20111222
  Serious: Yes (Hospitalization)
  Sender: FDA-Public Use
  Company Number: US-GLAXOSMITHKLINE-A0748281A

PATIENT
  Age: 49 Year
  Sex: Male
  Weight: 101.4 kg

DRUGS (11)
  1. ASPIRIN [Concomitant]
  2. HYTRIN [Concomitant]
  3. NIFEDIPINE [Concomitant]
  4. COREG [Concomitant]
  5. LORAZEPAM [Concomitant]
  6. LIPITOR [Concomitant]
  7. HYDROCHLOROTHIAZIDE [Concomitant]
  8. AVANDIA [Suspect]
     Indication: TYPE 2 DIABETES MELLITUS
     Dosage: 8MG PER DAY
     Route: 048
     Dates: start: 20040201, end: 20070501
  9. NITROGLYCERIN [Concomitant]
  10. HUMALOG [Concomitant]
  11. INSULIN [Concomitant]

REACTIONS (9)
  - MYOCARDIAL INFARCTION [None]
  - FLUID RETENTION [None]
  - CHEST PAIN [None]
  - ANXIETY [None]
  - CARDIAC DISORDER [None]
  - FATIGUE [None]
  - DYSPNOEA [None]
  - INJURY [None]
  - DEPRESSION [None]
